FAERS Safety Report 7280166-9 (Version None)
Quarter: 2011Q1

REPORT INFORMATION
  Report Type: 
  Country: None (occurrence: None)
  Receive Date: 20110208
  Receipt Date: 20110117
  Transmission Date: 20110831
  Serious: Yes (Hospitalization)
  Sender: FDA-Public Use
  Company Number: PHHY2010JP78233

PATIENT
  Sex: Female
  Weight: 47 kg

DRUGS (5)
  1. LASIX [Concomitant]
     Indication: OEDEMA PERIPHERAL
     Dosage: 40 MG, UNK
     Route: 048
     Dates: start: 20081231, end: 20090309
  2. LASIX [Concomitant]
     Dosage: 20 MG, UNK
     Route: 048
  3. GLYCYRON [Concomitant]
     Indication: HEPATIC FUNCTION ABNORMAL
     Dosage: UNK
     Route: 048
     Dates: start: 20090209, end: 20090611
  4. FEMARA [Suspect]
     Indication: BREAST CANCER
     Dosage: 2.5 MG, DAILY
     Route: 048
     Dates: start: 20090118, end: 20090309
  5. ALDACTONE [Concomitant]
     Indication: OEDEMA PERIPHERAL
     Dosage: 20 MG, UNK
     Route: 048
     Dates: start: 20081231, end: 20090209

REACTIONS (6)
  - AUTOIMMUNE HEPATITIS [None]
  - HEPATIC FUNCTION ABNORMAL [None]
  - ALANINE AMINOTRANSFERASE INCREASED [None]
  - BLOOD ALKALINE PHOSPHATASE INCREASED [None]
  - HEPATOMEGALY [None]
  - ASPARTATE AMINOTRANSFERASE INCREASED [None]
